FAERS Safety Report 4724750-2 (Version None)
Quarter: 2005Q3

REPORT INFORMATION
  Report Type: 
  Country: None (occurrence: None)
  Receive Date: 20050726
  Receipt Date: 20050725
  Transmission Date: 20060218
  Serious: Yes (Other)
  Sender: FDA-Public Use
  Company Number: US-GLAXOSMITHKLINE-A0567556A

PATIENT
  Age: 63 Year
  Sex: Male

DRUGS (10)
  1. AVANDAMET [Suspect]
     Dosage: 2TAB TWICE PER DAY
     Route: 048
     Dates: start: 20030101
  2. AVANDIA [Suspect]
     Dosage: 4MG TWICE PER DAY
     Route: 048
     Dates: start: 20020101, end: 20030101
  3. AMARYL [Concomitant]
  4. INDERAL [Concomitant]
  5. XANAX [Concomitant]
  6. ASPIRIN [Concomitant]
  7. BENAZEPRIL HYDROCHLOROTHIAZIDE [Concomitant]
  8. VYTORIN [Concomitant]
  9. ZOLOFT [Concomitant]
  10. IMIPRAMINE [Concomitant]

REACTIONS (9)
  - CONTUSION [None]
  - DRUG INEFFECTIVE [None]
  - GLYCOSYLATED HAEMOGLOBIN INCREASED [None]
  - HYPERGLYCAEMIA [None]
  - HYPOGLYCAEMIA [None]
  - INJURY [None]
  - NAUSEA [None]
  - OVERDOSE [None]
  - RETCHING [None]
